FAERS Safety Report 8781954 (Version 2)
Quarter: 2012Q4

REPORT INFORMATION
  Report Type: 
  Country: US (occurrence: US)
  Receive Date: 20120913
  Receipt Date: 20121022
  Transmission Date: 20130627
  Serious: No
  Sender: FDA-Public Use
  Company Number: US-BIOGENIDEC-2012BI035736

PATIENT
  Sex: Male

DRUGS (1)
  1. AVONEX [Suspect]
     Indication: MULTIPLE SCLEROSIS
     Route: 030

REACTIONS (7)
  - Injection site atrophy [Unknown]
  - Injection site scar [Unknown]
  - Drug effect decreased [Unknown]
  - Insomnia [Unknown]
  - Influenza like illness [Unknown]
  - Chills [Unknown]
  - Multiple sclerosis relapse [Unknown]
